FAERS Safety Report 5056284-2 (Version None)
Quarter: 2006Q3

REPORT INFORMATION
  Report Type: 
  Country: None (occurrence: None)
  Receive Date: 20060717
  Receipt Date: 20060704
  Transmission Date: 20061208
  Serious: Yes (Death)
  Sender: FDA-Public Use
  Company Number: GXKR2006GB03874

PATIENT
  Age: 70 Year
  Sex: Male

DRUGS (8)
  1. LISINOPRIL [Suspect]
     Indication: HYPERTENSION
     Dosage: ORAL
     Route: 048
     Dates: end: 20060416
  2. METFORMIN [Suspect]
     Indication: DIABETES MELLITUS NON-INSULIN-DEPENDENT
     Dosage: ORAL
     Route: 048
     Dates: end: 20060416
  3. ALLOPURINOL [Concomitant]
  4. ASPIRIN TAB [Concomitant]
  5. ATORVASTATIN CALCIUM [Concomitant]
  6. BISOPROLOL FUMARATE [Concomitant]
  7. DOXAZOSIN (DOXAZOSIN) [Concomitant]
  8. SILDENAFIL CITRATE [Concomitant]

REACTIONS (5)
  - CIRCULATORY COLLAPSE [None]
  - FALL [None]
  - HAEMODIALYSIS [None]
  - LACTIC ACIDOSIS [None]
  - RENAL FAILURE [None]
